FAERS Safety Report 8649343 (Version 2)
Quarter: 2012Q4

REPORT INFORMATION
  Report Type: 
  Country: PT (occurrence: PT)
  Receive Date: 20120705
  Receipt Date: 20120905
  Transmission Date: 20130627
  Serious: Yes (Other)
  Sender: FDA-Public Use
  Company Number: PT-RANBAXY-2012RR-57611

PATIENT
  Age: 37 Year
  Sex: Female

DRUGS (10)
  1. RISPERIDONE [Suspect]
     Indication: BIPOLAR I DISORDER
     Dosage: 3 mg, qd
     Route: 065
  2. DIVALPROEX SODIUM [Suspect]
     Indication: BIPOLAR I DISORDER
     Dosage: 250 mg, bid
     Route: 065
  3. DIVALPROEX SODIUM [Suspect]
     Indication: BIPOLAR I DISORDER
     Dosage: 500 mg, bid
     Route: 065
  4. DIVALPROEX SODIUM [Suspect]
     Indication: BIPOLAR I DISORDER
     Dosage: 250 mg in the morning and 500 mg at night
     Route: 065
  5. DIVALPROEX SODIUM [Suspect]
     Indication: BIPOLAR I DISORDER
     Dosage: 250 mg, bid
     Route: 065
  6. BIPERIDEN [Concomitant]
     Indication: BIPOLAR I DISORDER
     Dosage: 4 mg, bid
     Route: 065
  7. BIPERIDEN [Concomitant]
     Indication: BIPOLAR I DISORDER
     Dosage: 2 mg, bid
     Route: 065
  8. QUETIAPINE [Concomitant]
     Indication: BIPOLAR I DISORDER
     Dosage: 400 mg
     Route: 065
  9. LORAZEPAM [Concomitant]
     Indication: PRODUCT USED FOR UNKNOWN INDICATION
     Dosage: 1 mg qd + 2.5 mg before bedtime
     Route: 065
  10. TRAZODONE [Concomitant]
     Indication: BIPOLAR I DISORDER
     Dosage: 100 mg, qd
     Route: 065

REACTIONS (3)
  - Hyperammonaemic encephalopathy [Recovered/Resolved]
  - Hyperammonaemia [Recovered/Resolved]
  - Drug interaction [Recovered/Resolved]
